FAERS Safety Report 14360930 (Version 1)
Quarter: 2018Q1

REPORT INFORMATION
  Report Type: Report from Study
  Country: US (occurrence: US)
  Receive Date: 20180107
  Receipt Date: 20180107
  Transmission Date: 20180509
  Serious: Yes (Other)
  Sender: FDA-Public Use
  Company Number: US-SHIRE-US201731150

PATIENT
  Sex: Male

DRUGS (1)
  1. KALBITOR [Suspect]
     Active Substance: ECALLANTIDE
     Indication: HEREDITARY ANGIOEDEMA
     Route: 065

REACTIONS (3)
  - Hereditary angioedema [Recovering/Resolving]
  - Hypersensitivity [Unknown]
  - Injury [Recovering/Resolving]

NARRATIVE: CASE EVENT DATE: 2017
